FAERS Safety Report 9851182 (Version 1)
Quarter: 2014Q1

REPORT INFORMATION
  Report Type: Spontaneous
  Country: US (occurrence: US)
  Receive Date: 20140128
  Receipt Date: 20140128
  Transmission Date: 20141002
  Serious: Yes (Other)
  Sender: FDA-Public Use
  Company Number: US-SANOFI-AVENTIS-2013SA094293

PATIENT
  Age: 79 Year
  Sex: Female

DRUGS (13)
  1. LASIX [Suspect]
     Indication: JOINT SWELLING
     Route: 065
  2. HUMIRA [Suspect]
     Indication: CROHN^S DISEASE
     Dosage: LOADING DOSE
     Route: 058
     Dates: start: 20130501, end: 20130501
  3. HUMIRA [Suspect]
     Indication: CROHN^S DISEASE
     Route: 065
  4. POTASSIUM [Suspect]
     Route: 065
  5. PANTOPRAZOLE [Concomitant]
     Indication: DYSPEPSIA
     Route: 065
  6. ENALAPRIL [Concomitant]
     Indication: HYPERTENSION
     Route: 065
  7. ENTOCORT [Concomitant]
     Route: 065
  8. PENTASA [Concomitant]
     Route: 065
  9. VITAMIN B12 [Concomitant]
     Route: 065
  10. FOLIC ACID [Concomitant]
     Route: 065
  11. VITAMIN D3 [Concomitant]
     Route: 065
  12. ASPIRIN [Concomitant]
     Route: 065
  13. VIGRAN [Concomitant]
     Route: 065

REACTIONS (4)
  - Diarrhoea [Unknown]
  - Gait disturbance [Unknown]
  - Oropharyngeal pain [Unknown]
  - Aphonia [Unknown]
